FAERS Safety Report 15720124 (Version 1)
Quarter: 2018Q4

REPORT INFORMATION
  Report Type: Spontaneous
  Country: ES (occurrence: ES)
  Receive Date: 20181213
  Receipt Date: 20181213
  Transmission Date: 20190205
  Serious: Yes (Hospitalization, Disabling)
  Sender: FDA-Public Use
  Company Number: ES-BAUSCH-BL-2018-034748

PATIENT
  Age: 70 Year
  Sex: Female

DRUGS (4)
  1. DEXAMETASONA [Suspect]
     Active Substance: DEXAMETHASONE
     Indication: PLASMA CELL MYELOMA
     Dosage: (722A)
     Route: 048
     Dates: start: 20180528
  2. REVLIMID [Suspect]
     Active Substance: LENALIDOMIDE
     Indication: PRODUCT USED FOR UNKNOWN INDICATION
     Dosage: 1 CAPSULE / DAILY FOR 21 DAYS IN CYCLES OF 28 DAYS
     Route: 048
     Dates: start: 20180528
  3. BINOCRIT [Suspect]
     Active Substance: ERYTHROPOIETIN
     Indication: ANAEMIA
     Dosage: 30,000 IU / 0.75 INJECTABLE SOLUTION IN A PRE-FILLED SYRINGE, 6 PRE-FILLED SYRINGES OF 0.75 ML
     Route: 058
     Dates: start: 20180816
  4. KYPROLIS [Concomitant]
     Active Substance: CARFILZOMIB
     Indication: PLASMA CELL MYELOMA
     Dosage: POWDER FOR SOLUTION FOR PERFUSION 1 VIAL, 27 MG/M2
     Route: 042
     Dates: start: 20180528

REACTIONS (1)
  - Ischaemic stroke [Recovering/Resolving]

NARRATIVE: CASE EVENT DATE: 20181024
